FAERS Safety Report 6354620-8 (Version None)
Quarter: 2009Q3

REPORT INFORMATION
  Report Type: 
  Country: None (occurrence: None)
  Receive Date: 20090914
  Receipt Date: 20090907
  Transmission Date: 20100115
  Serious: Yes (Hospitalization)
  Sender: FDA-Public Use
  Company Number: IT-AMGEN-UK362331

PATIENT
  Sex: Female

DRUGS (6)
  1. ROMIPLOSTIM [Suspect]
     Indication: IDIOPATHIC THROMBOCYTOPENIC PURPURA
     Route: 058
     Dates: start: 20090213
  2. ROMIPLOSTIM - STUDY PROCEDURE [Suspect]
  3. VITAMIN B6 [Suspect]
  4. HUMALOG [Concomitant]
     Dates: start: 20080101
  5. DOXAZOSIN [Concomitant]
     Dates: start: 20000101
  6. CANDESARTAN CILEXETIL [Concomitant]
     Route: 048
     Dates: start: 20000101

REACTIONS (5)
  - HAEMORRHAGE [None]
  - HELICOBACTER PYLORI IDENTIFICATION TEST POSITIVE [None]
  - MUCOSAL HAEMORRHAGE [None]
  - SKIN HAEMORRHAGE [None]
  - THERAPEUTIC RESPONSE DECREASED [None]
